FAERS Safety Report 9406532 (Version 1)
Quarter: 2013Q3

REPORT INFORMATION
  Report Type: Spontaneous
  Country: US (occurrence: US)
  Receive Date: 20130718
  Receipt Date: 20130718
  Transmission Date: 20140515
  Serious: Yes (Other)
  Sender: FDA-Public Use
  Company Number: US-AMGEN-USASP2013049264

PATIENT
  Age: 67 Year
  Sex: Male

DRUGS (1)
  1. XGEVA [Suspect]
     Indication: PROSTATE CANCER
     Dosage: UNK
     Dates: start: 20121025

REACTIONS (2)
  - Jaw disorder [Unknown]
  - Tooth disorder [Unknown]
